FAERS Safety Report 12662496 (Version 3)
Quarter: 2016Q4

REPORT INFORMATION
  Report Type: Spontaneous
  Country: GB (occurrence: GB)
  Receive Date: 20160817
  Receipt Date: 20161208
  Transmission Date: 20170207
  Serious: Yes (Death, Other)
  Sender: FDA-Public Use
  Company Number: GB-ASTRAZENECA-2016SE87888

PATIENT
  Age: 73 Year
  Sex: Male
  Weight: 63 kg

DRUGS (21)
  1. FOLIC ACID. [Concomitant]
     Active Substance: FOLIC ACID
  2. HYDROCORTISONE. [Concomitant]
     Active Substance: HYDROCORTISONE
  3. BISOPROLOL [Concomitant]
     Active Substance: BISOPROLOL
  4. CLOPIDOGREL [Concomitant]
     Active Substance: CLOPIDOGREL BISULFATE
  5. GABAPENTIN. [Concomitant]
     Active Substance: GABAPENTIN
  6. GLYCERYL TRINITRATE [Concomitant]
     Active Substance: NITROGLYCERIN
  7. TRAMADOL. [Concomitant]
     Active Substance: TRAMADOL
  8. MEROPENEM. [Suspect]
     Active Substance: MEROPENEM
     Indication: SEPSIS
     Dosage: 1.0G UNKNOWN
     Route: 042
     Dates: start: 20160718, end: 20160718
  9. ATORVASTATIN [Concomitant]
     Active Substance: ATORVASTATIN
  10. SERETIDE [Concomitant]
     Active Substance: FLUTICASONE PROPIONATE\SALMETEROL XINAFOATE
  11. TAMSULOSIN [Concomitant]
     Active Substance: TAMSULOSIN
  12. DULOXETINE. [Concomitant]
     Active Substance: DULOXETINE
  13. FERROUS FUMARATE [Concomitant]
     Active Substance: FERROUS FUMARATE
  14. FUROSEMIDE. [Concomitant]
     Active Substance: FUROSEMIDE
  15. HUMULIN NOS [Concomitant]
     Active Substance: INSULIN HUMAN
  16. LANSOPRAZOLE. [Concomitant]
     Active Substance: LANSOPRAZOLE
  17. PARACETAMOL [Concomitant]
     Active Substance: ACETAMINOPHEN
  18. RIVAROXABAN [Concomitant]
     Active Substance: RIVAROXABAN
  19. VENTOLIN [Concomitant]
     Active Substance: ALBUTEROL SULFATE
  20. GLICLAZIDE [Concomitant]
     Active Substance: GLICLAZIDE
  21. HYDROXOCOBALAMIN [Concomitant]
     Active Substance: HYDROXOCOBALAMIN

REACTIONS (6)
  - Cardiac arrest [Fatal]
  - Anaphylactic shock [Fatal]
  - Drug hypersensitivity [Fatal]
  - Nausea [Not Recovered/Not Resolved]
  - Contraindicated product administered [Not Recovered/Not Resolved]
  - Dysgeusia [Not Recovered/Not Resolved]

NARRATIVE: CASE EVENT DATE: 20160718
